FAERS Safety Report 25549640 (Version 1)
Quarter: 2025Q3

REPORT INFORMATION
  Report Type: Spontaneous
  Country: US (occurrence: US)
  Receive Date: 20250714
  Receipt Date: 20250714
  Transmission Date: 20251021
  Serious: Yes (Other)
  Sender: FRESENIUS KABI
  Company Number: US-FreseniusKabi-FK202509264

PATIENT
  Weight: 3 kg

DRUGS (1)
  1. MILRINONE [Suspect]
     Active Substance: MILRINONE
     Indication: Product used for unknown indication

REACTIONS (4)
  - Accidental overdose [Unknown]
  - Haemodynamic instability [Unknown]
  - Device programming error [Unknown]
  - Product preparation error [Unknown]
